FAERS Safety Report 5588320-9 (Version None)
Quarter: 2008Q1

REPORT INFORMATION
  Report Type: 
  Country: None (occurrence: None)
  Receive Date: 20080111
  Receipt Date: 20080102
  Transmission Date: 20080703
  Serious: Yes (Hospitalization)
  Sender: FDA-Public Use
  Company Number: ES-JNJFOC-20080102363

PATIENT
  Age: 40 Year
  Sex: Male

DRUGS (8)
  1. ADOLONTA RETARD [Suspect]
     Indication: URETEROSCOPY
     Route: 048
  2. VIREAD [Suspect]
     Indication: HIV INFECTION
     Route: 065
  3. LAMIVUDINE [Suspect]
     Indication: HIV INFECTION
     Route: 048
  4. AUGMENTIN '250' [Suspect]
     Indication: INFECTION PROPHYLAXIS
     Route: 065
  5. TAVANIC [Suspect]
     Indication: INFECTION PROPHYLAXIS
     Route: 065
  6. RIBAVIRIN [Suspect]
     Indication: HEPATITIS C
     Route: 065
  7. INTERFERON [Suspect]
     Indication: HEPATITIS C
     Route: 065
  8. KALETRA [Suspect]
     Indication: HIV INFECTION
     Route: 048

REACTIONS (1)
  - HEPATITIS CHOLESTATIC [None]
